FAERS Safety Report 6186056-7 (Version None)
Quarter: 2009Q2

REPORT INFORMATION
  Report Type: 
  Country: None (occurrence: None)
  Receive Date: 20090507
  Receipt Date: 20090507
  Transmission Date: 20091009
  Serious: Yes (Life-Threatening, Hospitalization)
  Sender: FDA-Public Use
  Company Number: None

PATIENT
  Age: 70 Year
  Sex: Male
  Weight: 113.94 kg

DRUGS (1)
  1. SULINDAC [Suspect]
     Indication: PAIN
     Dosage: 200 MG BID PO
     Route: 048
     Dates: start: 19980514, end: 20090302

REACTIONS (4)
  - ANAEMIA [None]
  - CORONARY ARTERY DISEASE [None]
  - GASTRIC HAEMORRHAGE [None]
  - GASTROINTESTINAL HAEMORRHAGE [None]
